FAERS Safety Report 4288104-8 (Version None)
Quarter: 2004Q1

REPORT INFORMATION
  Report Type: 
  Country: None (occurrence: None)
  Receive Date: 20040205
  Receipt Date: 20040129
  Transmission Date: 20041129
  Serious: Yes (Other)
  Sender: FDA-Public Use
  Company Number: 2004-01-2039

PATIENT
  Age: 57 Year
  Sex: Male
  Weight: 58 kg

DRUGS (2)
  1. INTRON A (INTERFESON ALFA-2B RECOMBINANT) INJECTABLE POWDER [Suspect]
     Indication: HEPATITIS C
     Dosage: 6 MU QD INTRAMUSCULAR
     Route: 030
     Dates: start: 20040123, end: 20040126
  2. REBETOL [Suspect]
     Indication: HEPATITIS C
     Dosage: 600 MG QD ORAL
     Route: 048
     Dates: start: 20040123, end: 20040126

REACTIONS (1)
  - CHOLELITHIASIS [None]
